FAERS Safety Report 8973961 (Version 1)
Quarter: 2012Q4

REPORT INFORMATION
  Report Type: 
  Country: US (occurrence: US)
  Receive Date: 20121218
  Receipt Date: 20121218
  Transmission Date: 20130627
  Serious: Yes (Life-Threatening, Hospitalization)
  Sender: FDA-Public Use
  Company Number: US-BRISTOL-MYERS SQUIBB COMPANY-16392359

PATIENT
  Age: 40 Year
  Sex: Male

DRUGS (5)
  1. ABILIFY [Suspect]
     Indication: SCHIZOPHRENIA, PARANOID TYPE
     Dosage: started Abilify about a year ago
     Route: 048
     Dates: start: 201008, end: 20120208
  2. PAXIL [Suspect]
     Dosage: 30g at AM.
  3. CLONAZEPAM [Suspect]
  4. CLOZARIL [Suspect]
     Dosage: 1DF= 200Unit NOS at AM ,200 at Noon, 400 at HS.
  5. CLOZAPINE [Concomitant]

REACTIONS (1)
  - Cardiac arrest [Unknown]
